FAERS Safety Report 5508993-6 (Version None)
Quarter: 2007Q4

REPORT INFORMATION
  Report Type: 
  Country: None (occurrence: None)
  Receive Date: 20071107
  Receipt Date: 20071029
  Transmission Date: 20080405
  Serious: Yes (Hospitalization, Other)
  Sender: FDA-Public Use
  Company Number: JP-SANOFI-SYNTHELABO-A01200712140

PATIENT
  Sex: Female
  Weight: 37 kg

DRUGS (8)
  1. DEXAMETHASONE SODIUM PHOSPHATE [Concomitant]
     Indication: PREMEDICATION
     Route: 041
     Dates: start: 20071003, end: 20071017
  2. GRANISETRON HCL [Concomitant]
     Indication: PREMEDICATION
     Route: 041
     Dates: start: 20071003, end: 20071017
  3. FLUOROURACIL [Suspect]
     Route: 040
     Dates: start: 20071017, end: 20071017
  4. FLUOROURACIL [Suspect]
     Route: 041
     Dates: start: 20071017, end: 20071018
  5. LEUCOVORIN CALCIUM [Concomitant]
     Route: 041
     Dates: start: 20071017, end: 20071017
  6. GLUCOSE [Concomitant]
     Route: 041
     Dates: start: 20071019, end: 20071019
  7. RAMOSETRON HYDROCHLORIDE [Suspect]
     Indication: NAUSEA
     Dosage: 0.1 MG
     Route: 048
     Dates: start: 20071019, end: 20071019
  8. OXALIPLATIN [Suspect]
     Indication: RECTAL CANCER
     Route: 041
     Dates: start: 20071017, end: 20071017

REACTIONS (2)
  - DEPRESSED LEVEL OF CONSCIOUSNESS [None]
  - LEUKOPENIA [None]
